FAERS Safety Report 11943263 (Version 1)
Quarter: 2016Q1

REPORT INFORMATION
  Report Type: Spontaneous
  Country: GB (occurrence: GB)
  Receive Date: 20160125
  Receipt Date: 20160125
  Transmission Date: 20160526
  Serious: Yes (Hospitalization)
  Sender: FDA-Public Use
  Company Number: GB-ACCORD-037108

PATIENT
  Age: 91 Year
  Sex: Male

DRUGS (9)
  1. ALFACALCIDOL [Concomitant]
     Active Substance: ALFACALCIDOL
  2. FINASTERIDE. [Concomitant]
     Active Substance: FINASTERIDE
  3. DOXAZOSIN/DOXAZOSIN MESILATE [Concomitant]
  4. RAMIPRIL. [Concomitant]
     Active Substance: RAMIPRIL
  5. TERBINAFINE/TERBINAFINE HYDROCHLORIDE [Concomitant]
  6. BENDROFLUMETHIAZIDE [Concomitant]
     Active Substance: BENDROFLUMETHIAZIDE
  7. AMLODIPINE [Suspect]
     Active Substance: AMLODIPINE BESYLATE
     Indication: HYPERTENSION
     Dosage: IN THE MORNING
     Route: 048
  8. CLARITHROMYCIN/CLARITHROMYCIN LACTOBIONATE [Interacting]
     Active Substance: CLARITHROMYCIN LACTOBIONATE
     Indication: PNEUMONIA
     Route: 048
  9. CANESTEN HC [Concomitant]
     Active Substance: CLOTRIMAZOLE\HYDROCORTISONE

REACTIONS (3)
  - Orthostatic hypotension [Recovering/Resolving]
  - Drug interaction [Unknown]
  - Fall [Unknown]
